FAERS Safety Report 8143800-7 (Version None)
Quarter: 2012Q1

REPORT INFORMATION
  Report Type: 
  Country: None (occurrence: None)
  Receive Date: 20120217
  Receipt Date: 20120208
  Transmission Date: 20120608
  Serious: Yes (Other)
  Sender: FDA-Public Use
  Company Number: AD-VERTEX PHARMACEUTICALS INC.-000000000000000074

PATIENT
  Sex: Male
  Weight: 80 kg

DRUGS (6)
  1. CLONAZEPAM [Concomitant]
     Route: 048
     Dates: start: 20060101
  2. INCIVO (TELAPREVIR) [Suspect]
     Indication: HEPATITIS C
     Dosage: DOSAGE FORM: TABLET
     Route: 048
     Dates: start: 20111207
  3. ZYPREXA [Concomitant]
     Route: 048
     Dates: start: 20060101
  4. RIBAVIRIN [Concomitant]
     Dates: start: 20060101
  5. INCIVO (TELAPREVIR) [Suspect]
     Dosage: DOSAGE FORM: TABLET
     Route: 048
     Dates: end: 20111205
  6. PEGASYS [Concomitant]
     Dates: start: 20060101

REACTIONS (7)
  - HAEMORRHAGE [None]
  - RASH GENERALISED [None]
  - HAEMORRHOID INFECTION [None]
  - INAPPROPRIATE SCHEDULE OF DRUG ADMINISTRATION [None]
  - ASTHENIA [None]
  - GASTRIC DISORDER [None]
  - ABDOMINAL PAIN UPPER [None]
